FAERS Safety Report 5191219-3 (Version None)
Quarter: 2006Q4

REPORT INFORMATION
  Report Type: 
  Country: None (occurrence: None)
  Receive Date: 20061221
  Receipt Date: 20061221
  Transmission Date: 20070319
  Serious: No
  Sender: FDA-Public Use
  Company Number: None

PATIENT
  Sex: Female

DRUGS (1)
  1. GAMMAGARD [Suspect]
     Dosage: 10 GM IV BOTTLE
     Route: 042

REACTIONS (1)
  - PHARMACEUTICAL PRODUCT COMPLAINT [None]
